FAERS Safety Report 7588757-2 (Version None)
Quarter: 2011Q3

REPORT INFORMATION
  Report Type: 
  Country: None (occurrence: None)
  Receive Date: 20110705
  Receipt Date: 20110621
  Transmission Date: 20111222
  Serious: Yes (Death, Other)
  Sender: FDA-Public Use
  Company Number: JP-ASTELLAS-2011US003513

PATIENT
  Sex: Female

DRUGS (4)
  1. TARCEVA [Suspect]
     Indication: LUNG ADENOCARCINOMA
     Dosage: 150 MG, UID/QD
     Route: 048
     Dates: start: 20110426, end: 20110502
  2. AMLODIPINE [Concomitant]
     Indication: PRODUCT USED FOR UNKNOWN INDICATION
     Dosage: UNK
     Route: 065
     Dates: start: 20110101
  3. TARCEVA [Suspect]
     Dosage: 150 MG, UID/QD
     Route: 048
     Dates: start: 20110510, end: 20110521
  4. TARCEVA [Suspect]
     Dosage: 100 MG, UID/QD
     Route: 048
     Dates: start: 20110524, end: 20110528

REACTIONS (5)
  - INTRACRANIAL TUMOUR HAEMORRHAGE [None]
  - GINGIVITIS [None]
  - COAGULOPATHY [None]
  - HAEMORRHAGE SUBCUTANEOUS [None]
  - LUNG ADENOCARCINOMA [None]
